FAERS Safety Report 6363084-X (Version None)
Quarter: 2009Q3

REPORT INFORMATION
  Report Type: 
  Country: None (occurrence: None)
  Receive Date: 20090919
  Receipt Date: 20090613
  Transmission Date: 20100115
  Serious: No
  Sender: FDA-Public Use
  Company Number: US-ABBOTT-09P-163-0579928-00

PATIENT
  Sex: Female
  Weight: 65.83 kg

DRUGS (5)
  1. HUMIRA [Suspect]
     Indication: CROHN'S DISEASE
     Dosage: (160 MG DAY 1)
     Dates: start: 20090221
  2. HUMIRA [Suspect]
     Dosage: (80 MG DAY 15)
  3. HUMIRA [Suspect]
     Dosage: (STARTING DAY 29, 1 IN 2 WEEKS)
  4. OXYCODONE [Concomitant]
     Indication: DRUG USE FOR UNKNOWN INDICATION
  5. PROMETHAZINE [Concomitant]
     Indication: DRUG USE FOR UNKNOWN INDICATION

REACTIONS (3)
  - PAIN [None]
  - PYREXIA [None]
  - RETCHING [None]
